FAERS Safety Report 6265255-X (Version None)
Quarter: 2009Q3

REPORT INFORMATION
  Report Type: 
  Country: None (occurrence: None)
  Receive Date: 20090709
  Receipt Date: 20090709
  Transmission Date: 20100115
  Serious: Yes (Hospitalization)
  Sender: FDA-Public Use
  Company Number: None

PATIENT
  Sex: Female
  Weight: 92 kg

DRUGS (10)
  1. CYCLOPHOSPHAMIDE [Suspect]
     Dosage: 1180 MG
  2. DOXORUBICIN HCL [Suspect]
     Dosage: 118 MG
  3. ALLEGRA [Concomitant]
  4. CELEXA [Concomitant]
  5. COLACE [Concomitant]
  6. METOPROLOL (LOPRESSOR) [Concomitant]
  7. SINGULAIR [Concomitant]
  8. NYSTATIN (MYCOSTATIN) [Concomitant]
  9. PRILOSEC [Concomitant]
  10. COUMADIN [Concomitant]

REACTIONS (6)
  - DYSPHAGIA [None]
  - FEBRILE NEUTROPENIA [None]
  - INTERNATIONAL NORMALISED RATIO INCREASED [None]
  - MUCOSAL INFLAMMATION [None]
  - OESOPHAGITIS [None]
  - PANCYTOPENIA [None]
